FAERS Safety Report 13408804 (Version 3)
Quarter: 2022Q2

REPORT INFORMATION
  Report Type: Spontaneous
  Country: US (occurrence: US)
  Receive Date: 20170406
  Receipt Date: 20220513
  Transmission Date: 20220721
  Serious: Yes (Other)
  Sender: FDA-Public Use
  Company Number: US-JNJFOC-20170109162

PATIENT
  Sex: Male

DRUGS (1)
  1. RISPERDAL [Suspect]
     Active Substance: RISPERIDONE
     Indication: Schizoaffective disorder
     Route: 048
     Dates: start: 20040907

REACTIONS (3)
  - Obesity [Recovering/Resolving]
  - Emotional distress [Unknown]
  - Gynaecomastia [Unknown]
